FAERS Safety Report 8321210-7 (Version None)
Quarter: 2012Q1

REPORT INFORMATION
  Report Type: 
  Country: None (occurrence: None)
  Receive Date: 20120315
  Receipt Date: 20110211
  Transmission Date: 20120608
  Serious: No
  Sender: FDA-Public Use
  Company Number: PHHY2011US11667

PATIENT
  Age: 58 Year
  Sex: Female

DRUGS (4)
  1. GILENYA [Suspect]
     Dosage: 0.5 MG, DAILY, ORAL
     Route: 048
     Dates: start: 20101205, end: 20110210
  2. VALTRAX (DIAZEPAM, ISOPROPAMIDE IODIDE) [Concomitant]
  3. PROMETRIUM [Concomitant]
  4. TOVIAZ [Concomitant]

REACTIONS (2)
  - DIARRHOEA [None]
  - NAUSEA [None]
